FAERS Safety Report 21922339 (Version 2)
Quarter: 2023Q1

REPORT INFORMATION
  Report Type: Report from Study
  Country: BG (occurrence: BG)
  Receive Date: 20230128
  Receipt Date: 20230302
  Transmission Date: 20230417
  Serious: Yes (Hospitalization, Other)
  Sender: FDA-Public Use
  Company Number: BG-ABBVIE-4285049

PATIENT
  Age: 72 Year
  Sex: Male

DRUGS (1)
  1. SKYRIZI [Suspect]
     Active Substance: RISANKIZUMAB-RZAA
     Indication: Psoriasis
     Route: 058
     Dates: start: 202202

REACTIONS (2)
  - Prostate cancer [Unknown]
  - Surgery [Unknown]
